FAERS Safety Report 17361275 (Version 1)
Quarter: 2020Q1

REPORT INFORMATION
  Report Type: Other
  Country: CN (occurrence: CN)
  Receive Date: 20200203
  Receipt Date: 20200203
  Transmission Date: 20200409
  Serious: Yes (Other)
  Sender: FDA-Public Use
  Company Number: CN-GE HEALTHCARE LIFE SCIENCES-2020CSU000490

PATIENT

DRUGS (2)
  1. OMNIPAQUE [Suspect]
     Active Substance: IOHEXOL
     Indication: SCAN BRAIN
     Dosage: 100 ML, SINGLE
     Route: 042
     Dates: start: 20200114, end: 20200114
  2. OMNIPAQUE [Suspect]
     Active Substance: IOHEXOL
     Indication: SKULL FRACTURE

REACTIONS (3)
  - Disorganised speech [Recovered/Resolved]
  - Limb discomfort [Recovered/Resolved]
  - Delirium [Recovered/Resolved]

NARRATIVE: CASE EVENT DATE: 20200114
